FAERS Safety Report 8075215-4 (Version None)
Quarter: 2012Q1

REPORT INFORMATION
  Report Type: 
  Country: None (occurrence: None)
  Receive Date: 20120127
  Receipt Date: 20120123
  Transmission Date: 20120608
  Serious: No
  Sender: FDA-Public Use
  Company Number: US-PFIZER INC-2012018734

PATIENT
  Sex: Female
  Weight: 79.365 kg

DRUGS (4)
  1. HYDROCODONE [Concomitant]
     Indication: ARTHRITIS
     Dosage: UNK
  2. LYRICA [Concomitant]
     Indication: ARTHRITIS
     Dosage: UNK
  3. FOLIC ACID [Concomitant]
     Dosage: UNK
  4. CHANTIX [Suspect]
     Indication: SMOKING CESSATION THERAPY
     Dosage: 0.5 MG, 1X/DAY
     Route: 048
     Dates: start: 20120121

REACTIONS (2)
  - INSOMNIA [None]
  - FEAR [None]
